FAERS Safety Report 19397510 (Version 1)
Quarter: 2021Q2

REPORT INFORMATION
  Report Type: Spontaneous
  Country: US (occurrence: US)
  Receive Date: 20210609
  Receipt Date: 20210609
  Transmission Date: 20210717
  Serious: Yes (Death, Hospitalization, Other)
  Sender: FDA-Public Use
  Company Number: US-ASTRAZENECA-2021A490573

PATIENT
  Age: 18898 Day
  Sex: Female
  Weight: 68 kg

DRUGS (27)
  1. PROTONIX [Suspect]
     Active Substance: PANTOPRAZOLE SODIUM
     Indication: GASTROOESOPHAGEAL REFLUX DISEASE
     Route: 065
     Dates: start: 2013, end: 2017
  2. DULOXETINE. [Concomitant]
     Active Substance: DULOXETINE
  3. ISOSORBIDE MONONITRATE. [Concomitant]
     Active Substance: ISOSORBIDE MONONITRATE
  4. AMOXICILLIN. [Concomitant]
     Active Substance: AMOXICILLIN
     Dates: start: 2011
  5. OXYCODONE?ACETAMINOPHEN [Concomitant]
     Active Substance: ACETAMINOPHEN\OXYCODONE HYDROCHLORIDE
  6. ALPRAZOLAM. [Concomitant]
     Active Substance: ALPRAZOLAM
  7. IBUPROFEN. [Concomitant]
     Active Substance: IBUPROFEN
  8. CIPROFLOXACIN. [Concomitant]
     Active Substance: CIPROFLOXACIN
     Dates: start: 2013
  9. LOSARTAN. [Concomitant]
     Active Substance: LOSARTAN
     Dates: start: 2017
  10. SEROQUEL [Concomitant]
     Active Substance: QUETIAPINE FUMARATE
  11. GABAPENTIN. [Concomitant]
     Active Substance: GABAPENTIN
  12. CIPROFLOXACIN. [Concomitant]
     Active Substance: CIPROFLOXACIN
     Dates: start: 2017
  13. DOXYCYCLINE. [Concomitant]
     Active Substance: DOXYCYCLINE
     Dates: start: 2020
  14. AMLODIPINE BESYLATE. [Concomitant]
     Active Substance: AMLODIPINE BESYLATE
  15. NITROSTAT [Concomitant]
     Active Substance: NITROGLYCERIN
  16. OXYMORPHONE [Concomitant]
     Active Substance: OXYMORPHONE
  17. PROTONIX [Suspect]
     Active Substance: PANTOPRAZOLE SODIUM
     Indication: GASTROOESOPHAGEAL REFLUX DISEASE
     Dosage: GENERIC
     Route: 065
     Dates: start: 2011
  18. TELMISARTAN. [Concomitant]
     Active Substance: TELMISARTAN
     Dates: start: 2016
  19. ZANTAC [Concomitant]
     Active Substance: RANITIDINE HYDROCHLORIDE
     Dosage: 150
     Dates: start: 2011, end: 2017
  20. AZITHROMYCIN ANHYDROUS. [Concomitant]
     Active Substance: AZITHROMYCIN ANHYDROUS
     Dates: start: 2019
  21. FAMOTIDINE. [Concomitant]
     Active Substance: FAMOTIDINE
     Dates: start: 2017
  22. CLINDAMYCIN. [Concomitant]
     Active Substance: CLINDAMYCIN
  23. ONDANSETRON [Concomitant]
     Active Substance: ONDANSETRON
  24. PRILOSEC [Suspect]
     Active Substance: OMEPRAZOLE MAGNESIUM
     Indication: GASTROOESOPHAGEAL REFLUX DISEASE
     Route: 048
     Dates: start: 2011, end: 2017
  25. FUROSEMIDE. [Concomitant]
     Active Substance: FUROSEMIDE
     Dates: start: 2013
  26. LEVOFLOXACIN. [Concomitant]
     Active Substance: LEVOFLOXACIN
     Dates: start: 2019
  27. DIAZEPAM. [Concomitant]
     Active Substance: DIAZEPAM

REACTIONS (6)
  - Tubulointerstitial nephritis [Unknown]
  - Renal hypertension [Unknown]
  - End stage renal disease [Unknown]
  - Chronic kidney disease [Unknown]
  - Acute kidney injury [Unknown]
  - Renal failure [Unknown]

NARRATIVE: CASE EVENT DATE: 20160713
